FAERS Safety Report 5840416-X (Version None)
Quarter: 2008Q3

REPORT INFORMATION
  Report Type: 
  Country: None (occurrence: None)
  Receive Date: 20080811
  Receipt Date: 20080731
  Transmission Date: 20090109
  Serious: Yes (Life-Threatening)
  Sender: FDA-Public Use
  Company Number: US-WYE-H05325108

PATIENT
  Sex: Male
  Weight: 65.83 kg

DRUGS (1)
  1. TORISEL [Suspect]
     Indication: RENAL CELL CARCINOMA
     Route: 042
     Dates: start: 20071109, end: 20080207

REACTIONS (6)
  - BACK PAIN [None]
  - BLOOD PRESSURE DECREASED [None]
  - BLOOD PRESSURE INCREASED [None]
  - CONVULSION [None]
  - DYSPNOEA [None]
  - HYPERSENSITIVITY [None]
